FAERS Safety Report 10039719 (Version 1)
Quarter: 2014Q1

REPORT INFORMATION
  Report Type: Spontaneous
  Country: US (occurrence: US)
  Receive Date: 20140326
  Receipt Date: 20140326
  Transmission Date: 20141002
  Serious: Yes (Hospitalization)
  Sender: FDA-Public Use
  Company Number: US-JNJFOC-20140312606

PATIENT
  Age: 52 Year
  Sex: Female

DRUGS (1)
  1. XARELTO [Suspect]
     Indication: DEEP VEIN THROMBOSIS
     Route: 048
     Dates: start: 201403, end: 201403

REACTIONS (4)
  - Deep vein thrombosis [Unknown]
  - Thrombosis [Unknown]
  - Pulmonary embolism [Unknown]
  - Treatment noncompliance [Unknown]
